FAERS Safety Report 8915722 (Version 3)
Quarter: 2013Q1

REPORT INFORMATION
  Report Type: Spontaneous
  Country: US (occurrence: US)
  Receive Date: 20121119
  Receipt Date: 20130205
  Transmission Date: 20140127
  Serious: No
  Sender: FDA-Public Use
  Company Number: US-009507513-1211USA006039

PATIENT
  Age: 57 Year
  Sex: Male

DRUGS (3)
  1. VICTRELIS [Suspect]
     Indication: HEPATITIS C
     Dosage: 4 DF, TID
     Route: 048
     Dates: start: 20120712
  2. PEGASYS [Concomitant]
     Indication: HEPATITIS C
  3. RIBAPAK [Concomitant]
     Indication: HEPATITIS C

REACTIONS (5)
  - Headache [Unknown]
  - Dizziness [Unknown]
  - Asthenia [Unknown]
  - Dry mouth [Unknown]
  - Dysgeusia [Unknown]
